FAERS Safety Report 17440240 (Version 1)
Quarter: 2020Q1

REPORT INFORMATION
  Report Type: Spontaneous
  Country: US (occurrence: US)
  Receive Date: 20200220
  Receipt Date: 20200220
  Transmission Date: 20200409
  Serious: No
  Sender: FDA-Public Use
  Company Number: US-PFIZER INC-2020073380

PATIENT
  Age: 66 Year
  Sex: Male

DRUGS (1)
  1. RETACRIT [Suspect]
     Active Substance: EPOETIN ALFA-EPBX
     Dosage: 10000 IU, UNK (10,000 UNITS THREE TIMES PER WEEK)

REACTIONS (3)
  - Off label use [Unknown]
  - Product use issue [Unknown]
  - Haemoglobin increased [Unknown]
